FAERS Safety Report 4536544-1 (Version None)
Quarter: 2004Q4

REPORT INFORMATION
  Report Type: 
  Country: None (occurrence: None)
  Receive Date: 20041220
  Receipt Date: 20041213
  Transmission Date: 20050328
  Serious: Yes (Hospitalization)
  Sender: FDA-Public Use
  Company Number: 2004110259

PATIENT
  Age: 14 Year
  Sex: Male
  Weight: 79 kg

DRUGS (1)
  1. GENOTONORM(SOMATROPIN) [Suspect]
     Indication: PRADER-WILLI SYNDROME
     Dosage: SUBCUTANEOUS
     Route: 058
     Dates: start: 20030224, end: 20040720

REACTIONS (4)
  - CONDITION AGGRAVATED [None]
  - HYPERCAPNIA [None]
  - HYPOXIA [None]
  - PULMONARY HYPERTENSION [None]
